FAERS Safety Report 11572501 (Version 5)
Quarter: 2017Q1

REPORT INFORMATION
  Report Type: Spontaneous
  Country: US (occurrence: US)
  Receive Date: 20150929
  Receipt Date: 20170301
  Transmission Date: 20170428
  Serious: Yes (Other)
  Sender: FDA-Public Use
  Company Number: US-BAYER-2015-426891

PATIENT
  Age: 68 Year
  Sex: Female
  Weight: 86.62 kg

DRUGS (31)
  1. CYCLOSPORINE. [Concomitant]
     Active Substance: CYCLOSPORINE
     Dosage: UNK
  2. LEVAQUIN [Suspect]
     Active Substance: LEVOFLOXACIN
     Indication: RESPIRATORY TRACT INFECTION
     Dosage: 500 MG, UNK
     Dates: start: 20091210
  3. TOPROL XL [Concomitant]
     Active Substance: METOPROLOL SUCCINATE
  4. TRAMADOL. [Concomitant]
     Active Substance: TRAMADOL
     Indication: PAIN IN EXTREMITY
     Dosage: UNK
  5. MACROBID [Concomitant]
     Active Substance: NITROFURANTOIN\NITROFURANTOIN MONOHYDRATE
     Dosage: 100 MG, UNK
     Dates: start: 20130914, end: 20130930
  6. CIPRO [Concomitant]
     Active Substance: CIPROFLOXACIN HYDROCHLORIDE
     Dosage: 250 MG, UNK
  7. CIPRO [Concomitant]
     Active Substance: CIPROFLOXACIN HYDROCHLORIDE
     Dosage: 250 MG, UNK
     Dates: start: 20160517
  8. AVELOX [Suspect]
     Active Substance: MOXIFLOXACIN HYDROCHLORIDE
     Indication: SINUSITIS
     Dosage: UNK
     Route: 048
     Dates: start: 20081201
  9. CLOZAPINE. [Concomitant]
     Active Substance: CLOZAPINE
     Dosage: UNK
  10. ROPINIROLE. [Concomitant]
     Active Substance: ROPINIROLE
     Dosage: UNK
  11. CIPRO [Concomitant]
     Active Substance: CIPROFLOXACIN HYDROCHLORIDE
     Dosage: 250 MG, UNK
     Dates: start: 20160921
  12. AVELOX [Suspect]
     Active Substance: MOXIFLOXACIN HYDROCHLORIDE
     Indication: BRONCHITIS
     Dosage: 400 MG, UNK
     Route: 048
     Dates: start: 20090319
  13. AVELOX [Suspect]
     Active Substance: MOXIFLOXACIN HYDROCHLORIDE
     Indication: SINUSITIS
     Dosage: 400 MG, UNK
     Dates: start: 20160128
  14. LEVAQUIN [Suspect]
     Active Substance: LEVOFLOXACIN
     Indication: RESPIRATORY TRACT INFECTION
     Dosage: 750 MG, 5 DAYS FOR TOTAL OF 5
     Route: 050
     Dates: start: 20100226, end: 20100302
  15. THEOPHYLLINE [Concomitant]
     Active Substance: THEOPHYLLINE ANHYDROUS
     Dosage: UNK
  16. LORTAB [Concomitant]
     Active Substance: ACETAMINOPHEN\HYDROCODONE BITARTRATE
  17. METHOTREXATE. [Concomitant]
     Active Substance: METHOTREXATE
     Dosage: UNK
  18. WARFARIN [Concomitant]
     Active Substance: WARFARIN
     Dosage: UNK
  19. AVELOX [Suspect]
     Active Substance: MOXIFLOXACIN HYDROCHLORIDE
     Indication: SINUSITIS
     Dosage: UNK
     Route: 048
     Dates: start: 20081201
  20. LEVAQUIN [Suspect]
     Active Substance: LEVOFLOXACIN
     Indication: RESPIRATORY TRACT INFECTION
     Dosage: 500 MG, UNK
     Dates: start: 20100430
  21. LEVOXYL [Concomitant]
     Active Substance: LEVOTHYROXINE SODIUM
  22. DIGITEK [Concomitant]
     Active Substance: DIGOXIN
  23. ATIVAN [Concomitant]
     Active Substance: LORAZEPAM
  24. DULOXETINE. [Concomitant]
     Active Substance: DULOXETINE
     Dosage: UNK
  25. EFFEXOR [Concomitant]
     Active Substance: VENLAFAXINE HYDROCHLORIDE
  26. ASACOL [Concomitant]
     Active Substance: MESALAMINE
  27. TIZANIDINE. [Concomitant]
     Active Substance: TIZANIDINE
     Dosage: UNK
  28. AVELOX [Suspect]
     Active Substance: MOXIFLOXACIN HYDROCHLORIDE
     Indication: SINUSITIS
     Dosage: 400 MG, UNK
     Dates: start: 20081201
  29. OMEPRAZOLE. [Concomitant]
     Active Substance: OMEPRAZOLE
     Dosage: UNK
  30. METOCLOPRAMIDE. [Concomitant]
     Active Substance: METOCLOPRAMIDE
     Dosage: UNK
  31. GLIBENCLAMIDE [Concomitant]
     Active Substance: GLYBURIDE
     Dosage: UNK

REACTIONS (33)
  - Anxiety [None]
  - Paraesthesia [None]
  - Nail disorder [None]
  - Hair texture abnormal [None]
  - Chest pain [None]
  - Rectal haemorrhage [None]
  - Burning sensation [None]
  - Dyspepsia [None]
  - Injury [Not Recovered/Not Resolved]
  - Muscular weakness [None]
  - Arthralgia [None]
  - Myalgia [None]
  - Glaucoma [None]
  - Pain in extremity [None]
  - Back pain [None]
  - Weight increased [None]
  - Neck pain [None]
  - Intervertebral disc degeneration [None]
  - Dyspnoea [None]
  - Rash [None]
  - Swelling [None]
  - Constipation [None]
  - Emotional disorder [Not Recovered/Not Resolved]
  - Sacroiliitis [None]
  - Fatigue [None]
  - Stress [None]
  - Musculoskeletal stiffness [None]
  - Hypoaesthesia [None]
  - Squamous cell carcinoma [None]
  - Neuropathy peripheral [Not Recovered/Not Resolved]
  - Pain [None]
  - Paraesthesia [None]
  - Dizziness [None]

NARRATIVE: CASE EVENT DATE: 200903
